FAERS Safety Report 5858994-3 (Version None)
Quarter: 2008Q3

REPORT INFORMATION
  Report Type: 
  Country: None (occurrence: None)
  Receive Date: 20080825
  Receipt Date: 20080820
  Transmission Date: 20090109
  Serious: Yes (Death)
  Sender: FDA-Public Use
  Company Number: OSCN-PR-0808S-0498

PATIENT
  Sex: Male

DRUGS (2)
  1. OMNISCAN [Suspect]
     Indication: DRUG USE FOR UNKNOWN INDICATION
     Dosage: NR, SINGLE DOSE, IV
     Route: 042
     Dates: start: 20050307, end: 20050307
  2. OMNISCAN [Suspect]
     Indication: DRUG USE FOR UNKNOWN INDICATION
     Dosage: NR, SINGLE DOSE, IV
     Route: 042
     Dates: start: 20051114, end: 20051114

REACTIONS (1)
  - NEPHROGENIC SYSTEMIC FIBROSIS [None]
